FAERS Safety Report 19904615 (Version 1)
Quarter: 2021Q3

REPORT INFORMATION
  Report Type: Report from Study
  Country: CA (occurrence: CA)
  Receive Date: 20210930
  Receipt Date: 20210930
  Transmission Date: 20211014
  Serious: Yes (Other)
  Sender: FDA-Public Use
  Company Number: CA-EMD SERONO-9268459

PATIENT
  Age: 71 Year
  Sex: Male
  Weight: 101 kg

DRUGS (3)
  1. BAVENCIO [Suspect]
     Active Substance: AVELUMAB
     Dosage: INFUSION 2
     Route: 042
     Dates: start: 20210910
  2. BAVENCIO [Suspect]
     Active Substance: AVELUMAB
     Indication: TRANSITIONAL CELL CARCINOMA
     Dosage: INFUSION 1
     Route: 042
     Dates: start: 20210813
  3. BAVENCIO [Suspect]
     Active Substance: AVELUMAB
     Dosage: INFUSION 2
     Route: 042
     Dates: start: 20210827

REACTIONS (5)
  - Mobility decreased [Not Recovered/Not Resolved]
  - Rash [Not Recovered/Not Resolved]
  - Anxiety [Not Recovered/Not Resolved]
  - Respiratory distress [Not Recovered/Not Resolved]
  - Back pain [Not Recovered/Not Resolved]

NARRATIVE: CASE EVENT DATE: 20210910
